FAERS Safety Report 6683820-2 (Version None)
Quarter: 2010Q2

REPORT INFORMATION
  Report Type: 
  Country: None (occurrence: None)
  Receive Date: 20100416
  Receipt Date: 20090429
  Transmission Date: 20101027
  Serious: No
  Sender: FDA-Public Use
  Company Number: A0826122A

PATIENT
  Sex: Female

DRUGS (1)
  1. VUSION [Suspect]
     Route: 061

REACTIONS (1)
  - THERAPEUTIC RESPONSE UNEXPECTED [None]
